FAERS Safety Report 7604726-8 (Version None)
Quarter: 2011Q3

REPORT INFORMATION
  Report Type: 
  Country: None (occurrence: None)
  Receive Date: 20110712
  Receipt Date: 20110706
  Transmission Date: 20111222
  Serious: Yes (Hospitalization)
  Sender: FDA-Public Use
  Company Number: DE-ABBOTT-10P-062-0691208-00

PATIENT
  Sex: Female

DRUGS (5)
  1. HUMIRA [Suspect]
     Indication: RHEUMATOID ARTHRITIS
     Route: 058
     Dates: start: 20100127, end: 20101015
  2. TRAMADOL HCL [Concomitant]
     Indication: RHEUMATOID ARTHRITIS
  3. HUMIRA [Suspect]
     Dates: start: 20110609
  4. GLYBURIDE [Concomitant]
     Indication: DIABETES MELLITUS
     Route: 048
  5. THYROID DRUGS [Concomitant]
     Indication: PRODUCT USED FOR UNKNOWN INDICATION

REACTIONS (2)
  - MUSCULOSKELETAL STIFFNESS [None]
  - RHEUMATOID ARTHRITIS [None]
